FAERS Safety Report 11744085 (Version 1)
Quarter: 2015Q4

REPORT INFORMATION
  Report Type: Spontaneous
  Country: CN (occurrence: CN)
  Receive Date: 20151116
  Receipt Date: 20151116
  Transmission Date: 20160304
  Serious: Yes (Life-Threatening)
  Sender: FDA-Public Use
  Company Number: CN-B. BRAUN MEDICAL INC.-1044248

PATIENT
  Age: 55 Year
  Sex: Male

DRUGS (7)
  1. FENTANYL HYDROCHLORIDE [Concomitant]
     Active Substance: FENTANYL HYDROCHLORIDE
     Dates: start: 20150409, end: 20150409
  2. SEVOFLURANE. [Concomitant]
     Active Substance: SEVOFLURANE
     Dates: start: 20150409, end: 20150409
  3. PROPOFOL. [Concomitant]
     Active Substance: PROPOFOL
  4. SUFENTANIL [Concomitant]
     Active Substance: SUFENTANIL
  5. GELOFUSINE [Concomitant]
     Active Substance: GELATIN\SODIUM CHLORIDE
     Dates: start: 20150409, end: 20150409
  6. CIS-ATRACURIUM [Concomitant]
     Active Substance: CISATRACURIUM
     Dates: start: 20150409, end: 20150409
  7. LACTATED RINGERS [Suspect]
     Active Substance: CALCIUM CHLORIDE\POTASSIUM CHLORIDE\SODIUM CHLORIDE\SODIUM LACTATE
     Route: 042
     Dates: start: 20150409, end: 20150409

REACTIONS (4)
  - Hypotension [None]
  - Peripheral swelling [None]
  - Flushing [None]
  - Cardiac arrest [None]
